FAERS Safety Report 25837906 (Version 1)
Quarter: 2025Q3

REPORT INFORMATION
  Report Type: Spontaneous
  Country: CA (occurrence: CA)
  Receive Date: 20250923
  Receipt Date: 20250923
  Transmission Date: 20251020
  Serious: Yes (Other)
  Sender: SANDOZ
  Company Number: CA-SANDOZ-SDZ2025CA068561

PATIENT
  Age: 31 Year
  Sex: Female

DRUGS (1)
  1. ETANERCEPT [Suspect]
     Active Substance: ETANERCEPT
     Indication: Rheumatoid arthritis
     Dosage: UNK, QW
     Route: 065

REACTIONS (3)
  - Syncope [Recovered/Resolved]
  - Hypotension [Recovered/Resolved]
  - Stress [Recovered/Resolved]
